FAERS Safety Report 11312321 (Version 1)
Quarter: 2015Q3

REPORT INFORMATION
  Report Type: Spontaneous
  Country: US (occurrence: US)
  Receive Date: 20150727
  Receipt Date: 20150727
  Transmission Date: 20151125
  Serious: No
  Sender: FDA-Public Use
  Company Number: US-ABBVIE-14P-163-1291886-00

PATIENT

DRUGS (2)
  1. SYNTHROID [Suspect]
     Active Substance: LEVOTHYROXINE SODIUM
     Dosage: YEARS
     Route: 048
     Dates: start: 201409
  2. SYNTHROID [Suspect]
     Active Substance: LEVOTHYROXINE SODIUM
     Indication: PRODUCT USED FOR UNKNOWN INDICATION
     Dosage: YEARS
     Route: 048
     Dates: end: 2009

REACTIONS (1)
  - Blood thyroid stimulating hormone increased [Not Recovered/Not Resolved]
